FAERS Safety Report 5982227-0 (Version None)
Quarter: 2008Q4

REPORT INFORMATION
  Report Type: 
  Country: None (occurrence: None)
  Receive Date: 20081208
  Receipt Date: 20081126
  Transmission Date: 20090506
  Serious: Yes (Other)
  Sender: FDA-Public Use
  Company Number: GB-JNJFOC-20081200183

PATIENT
  Age: 17 Year
  Sex: Male
  Weight: 70 kg

DRUGS (3)
  1. REMICADE [Suspect]
     Indication: CROHN'S DISEASE
     Route: 042
  2. SULFASALAZINE [Concomitant]
     Indication: CROHN'S DISEASE
     Route: 048
  3. SULFASALAZINE [Concomitant]
     Indication: ARTHRALGIA
     Route: 048

REACTIONS (1)
  - DYSPNOEA [None]
